FAERS Safety Report 24244452 (Version 2)
Quarter: 2024Q4

REPORT INFORMATION
  Report Type: Spontaneous
  Country: US (occurrence: None)
  Receive Date: 20240823
  Receipt Date: 20241009
  Transmission Date: 20250115
  Serious: Yes (Hospitalization, Other)
  Sender: USAntibiotics
  Company Number: US-USAntibiotics-000333

PATIENT
  Sex: Male

DRUGS (4)
  1. AUGMENTIN [Suspect]
     Active Substance: AMOXICILLIN\CLAVULANATE POTASSIUM
     Indication: Product used for unknown indication
  2. OFEV [Suspect]
     Active Substance: NINTEDANIB
     Indication: Idiopathic pulmonary fibrosis
     Dosage: 300 MILIGRAM(S)
     Route: 048
     Dates: start: 20240326
  3. AMOXICILLIN [Concomitant]
     Active Substance: AMOXICILLIN
     Indication: Sinusitis
     Dosage: 125 MG ONE TABLET EVERY 12 HOURS
  4. Amoxicillin clavulanate 875 [Concomitant]
     Indication: Sinusitis

REACTIONS (7)
  - Sinusitis [Unknown]
  - Headache [Unknown]
  - Fatigue [Unknown]
  - Hypertension [Unknown]
  - Protein total increased [Unknown]
  - Diarrhoea [Unknown]
  - Cerebrovascular accident [Not Recovered/Not Resolved]
